FAERS Safety Report 20223855 (Version 2)
Quarter: 2022Q1

REPORT INFORMATION
  Report Type: Spontaneous
  Country: CN (occurrence: CN)
  Receive Date: 20211223
  Receipt Date: 20220104
  Transmission Date: 20220423
  Serious: Yes (Other)
  Sender: FDA-Public Use
  Company Number: CN-NOVARTISPH-NVSC2021CN291692

PATIENT
  Age: 71 Year
  Sex: Female
  Weight: 55 kg

DRUGS (2)
  1. COSENTYX [Suspect]
     Active Substance: SECUKINUMAB
     Indication: Product used for unknown indication
     Dosage: UNK (1 INJECTION/TIME)
     Route: 065
     Dates: start: 20211206
  2. COSENTYX [Suspect]
     Active Substance: SECUKINUMAB
     Dosage: UNK (1 INJECTION/TIME)
     Route: 065
     Dates: start: 20211213

REACTIONS (2)
  - Haemorrhage [Unknown]
  - Blister [Unknown]
